FAERS Safety Report 15767696 (Version 2)
Quarter: 2019Q1

REPORT INFORMATION
  Report Type: Spontaneous
  Country: US (occurrence: US)
  Receive Date: 20181227
  Receipt Date: 20190121
  Transmission Date: 20190417
  Serious: No
  Sender: FDA-Public Use
  Company Number: US-PFIZER INC-2018528346

PATIENT
  Age: 38 Year
  Sex: Female
  Weight: 58.97 kg

DRUGS (3)
  1. ADVIL COLD AND SINUS [Suspect]
     Active Substance: IBUPROFEN\PSEUDOEPHEDRINE HYDROCHLORIDE
     Dosage: UNK
  2. MUCINEX [Suspect]
     Active Substance: GUAIFENESIN
     Dosage: UNK
  3. SUDAFED [GUAIFENESIN;PSEUDOEPHEDRINE HYDROCHLORIDE] [Suspect]
     Active Substance: GUAIFENESIN\PSEUDOEPHEDRINE HYDROCHLORIDE
     Dosage: UNK

REACTIONS (4)
  - Nausea [Unknown]
  - Influenza like illness [Unknown]
  - Malaise [Unknown]
  - Somnolence [Unknown]
